FAERS Safety Report 6702470-2 (Version None)
Quarter: 2010Q2

REPORT INFORMATION
  Report Type: 
  Country: None (occurrence: None)
  Receive Date: 20100429
  Receipt Date: 20100422
  Transmission Date: 20101027
  Serious: Yes (Other)
  Sender: FDA-Public Use
  Company Number: B0648854A

PATIENT
  Age: 37 Year
  Sex: Female
  Weight: 65 kg

DRUGS (2)
  1. CEFUROXIME [Suspect]
     Route: 042
  2. GENERAL ANAESTHESIA [Concomitant]
     Indication: TOOTH EXTRACTION

REACTIONS (1)
  - HYPOTENSION [None]
